FAERS Safety Report 14251485 (Version 7)
Quarter: 2019Q1

REPORT INFORMATION
  Report Type: Spontaneous
  Country: US (occurrence: US)
  Receive Date: 20171205
  Receipt Date: 20190329
  Transmission Date: 20190417
  Serious: Yes (Hospitalization)
  Sender: FDA-Public Use
  Company Number: US-ACTELION-A-NJ2017-163595

PATIENT
  Age: 49 Year
  Sex: Female

DRUGS (15)
  1. OPSUMIT [Suspect]
     Active Substance: MACITENTAN
     Indication: PULMONARY ARTERIAL HYPERTENSION
     Dosage: 10 MG, QD
     Route: 048
     Dates: start: 20170809
  2. NIFEDIPINE. [Concomitant]
     Active Substance: NIFEDIPINE
     Dosage: 90 MG, UNK
  3. SILDENAFIL. [Concomitant]
     Active Substance: SILDENAFIL
  4. VITAMIN D [Concomitant]
     Active Substance: CHOLECALCIFEROL
  5. SPIRONOLACTONE. [Concomitant]
     Active Substance: SPIRONOLACTONE
  6. VITAMIN B12 [Concomitant]
     Active Substance: CYANOCOBALAMIN
  7. PANTOPRAZOLE [Concomitant]
     Active Substance: PANTOPRAZOLE
  8. ORENITRAM [Concomitant]
     Active Substance: TREPROSTINIL
  9. LASIX [Concomitant]
     Active Substance: FUROSEMIDE
  10. BETHANECHOL [Concomitant]
     Active Substance: BETHANECHOL
  11. LOSARTAN. [Concomitant]
     Active Substance: LOSARTAN
  12. LEVOTHYROXINE. [Concomitant]
     Active Substance: LEVOTHYROXINE
  13. DULERA [Concomitant]
     Active Substance: FORMOTEROL FUMARATE DIHYDRATE\MOMETASONE FUROATE
  14. POTASSIUM [Concomitant]
     Active Substance: POTASSIUM
  15. BUMEX [Concomitant]
     Active Substance: BUMETANIDE

REACTIONS (19)
  - Generalised oedema [Recovered/Resolved with Sequelae]
  - Gastrointestinal disorder [Unknown]
  - Oxygen saturation decreased [Unknown]
  - Fatigue [Recovered/Resolved]
  - Lethargy [Not Recovered/Not Resolved]
  - Hypersomnia [Not Recovered/Not Resolved]
  - Therapy non-responder [Unknown]
  - Dizziness [Recovered/Resolved]
  - Orthopnoea [Unknown]
  - Acute kidney injury [Unknown]
  - Abdominal discomfort [Not Recovered/Not Resolved]
  - Decreased interest [Not Recovered/Not Resolved]
  - Dyspnoea [Recovered/Resolved]
  - Hypoxia [Unknown]
  - Blood pressure decreased [Not Recovered/Not Resolved]
  - Oedema peripheral [Unknown]
  - Blood creatinine increased [Unknown]
  - Constipation [Not Recovered/Not Resolved]
  - Diarrhoea [Not Recovered/Not Resolved]

NARRATIVE: CASE EVENT DATE: 201709
